FAERS Safety Report 8615617-8 (Version None)
Quarter: 2012Q3

REPORT INFORMATION
  Report Type: 
  Country: None (occurrence: None)
  Receive Date: 20120823
  Receipt Date: 20120813
  Transmission Date: 20120928
  Serious: Yes (Hospitalization)
  Sender: FDA-Public Use
  Company Number: JP-ELI_LILLY_AND_COMPANY-JP201206000518

PATIENT
  Age: 65 Year
  Sex: Male

DRUGS (3)
  1. FORTEO [Suspect]
     Dosage: UNK
     Route: 058
     Dates: start: 20120424
  2. LOXONIN [Concomitant]
     Dosage: UNK
     Route: 048
     Dates: start: 20060101
  3. CORTICOSTEROIDS [Concomitant]
     Dosage: UNK
     Route: 048
     Dates: start: 20060101

REACTIONS (5)
  - BACK PAIN [None]
  - INJECTION SITE HAEMATOMA [None]
  - CANDIDIASIS [None]
  - TREMOR [None]
  - HOSPITALISATION [None]
